FAERS Safety Report 19945364 (Version 2)
Quarter: 2021Q4

REPORT INFORMATION
  Report Type: Spontaneous
  Country: US (occurrence: US)
  Receive Date: 20211012
  Receipt Date: 20211103
  Transmission Date: 20220303
  Serious: No
  Sender: FDA-Public Use
  Company Number: US-LEADINGPHARMA-US-2021LEASPO00296

PATIENT
  Age: 59 Year
  Sex: Female
  Weight: 150 kg

DRUGS (5)
  1. LORAZEPAM [Suspect]
     Active Substance: LORAZEPAM
     Indication: Anxiety
     Route: 048
     Dates: start: 20211002
  2. LORAZEPAM [Suspect]
     Active Substance: LORAZEPAM
     Indication: Sleep disorder
     Route: 048
     Dates: start: 20211002
  3. TRAZODONE [Concomitant]
     Active Substance: TRAZODONE HYDROCHLORIDE
     Route: 065
  4. TRAZODONE [Concomitant]
     Active Substance: TRAZODONE HYDROCHLORIDE
     Route: 065
  5. DAYVIGO [Concomitant]
     Active Substance: LEMBOREXANT
     Route: 065

REACTIONS (2)
  - Drug ineffective [Unknown]
  - Product substitution issue [None]

NARRATIVE: CASE EVENT DATE: 20211002
